FAERS Safety Report 13103935 (Version 7)
Quarter: 2019Q3

REPORT INFORMATION
  Report Type: Spontaneous
  Country: US (occurrence: US)
  Receive Date: 20170111
  Receipt Date: 20190816
  Transmission Date: 20191004
  Serious: Yes (Death, Other)
  Sender: FDA-Public Use
  Company Number: US-ASTRAZENECA-2017SE01424

PATIENT
  Age: 638 Month
  Sex: Male
  Weight: 117.9 kg

DRUGS (52)
  1. COLCRYS [Concomitant]
     Active Substance: COLCHICINE
     Indication: ANTIINFLAMMATORY THERAPY
  2. CYANOCOBALAMIN. [Concomitant]
     Active Substance: CYANOCOBALAMIN
     Indication: VITAMIN B COMPLEX DEFICIENCY
  3. DIAZEPAM. [Concomitant]
     Active Substance: DIAZEPAM
     Indication: MUSCLE SPASMS
  4. ZETIA [Concomitant]
     Active Substance: EZETIMIBE
     Indication: BLOOD CHOLESTEROL
  5. ASPIRIN. [Concomitant]
     Active Substance: ASPIRIN
  6. ACTOS [Concomitant]
     Active Substance: PIOGLITAZONE HYDROCHLORIDE
     Route: 048
  7. LYRICA [Concomitant]
     Active Substance: PREGABALIN
     Route: 048
     Dates: start: 20151207
  8. HYDROCODONE BITARTRATE AND ACETAMINOPHEN [Concomitant]
     Active Substance: ACETAMINOPHEN\HYDROCODONE BITARTRATE
     Dosage: 10-325 MG
     Route: 048
     Dates: start: 20161126
  9. MELOXICAM. [Concomitant]
     Active Substance: MELOXICAM
     Route: 048
  10. LOSARTAN. [Concomitant]
     Active Substance: LOSARTAN
  11. AVANDIA [Concomitant]
     Active Substance: ROSIGLITAZONE MALEATE
     Dosage: 4.0MG UNKNOWN
     Dates: start: 20070416
  12. GLYBURIDE. [Concomitant]
     Active Substance: GLYBURIDE
     Dosage: 2.5MG UNKNOWN
     Dates: start: 20051205
  13. TAGAMET [Concomitant]
     Active Substance: CIMETIDINE
  14. METOCLOPRAMIDE. [Concomitant]
     Active Substance: METOCLOPRAMIDE
     Route: 048
  15. SIMVASTATIN. [Concomitant]
     Active Substance: SIMVASTATIN
     Route: 048
     Dates: start: 20151207
  16. NEXIUM [Suspect]
     Active Substance: ESOMEPRAZOLE MAGNESIUM
     Indication: GASTROOESOPHAGEAL REFLUX DISEASE
     Route: 048
     Dates: start: 2005, end: 2016
  17. NEXIUM [Suspect]
     Active Substance: ESOMEPRAZOLE MAGNESIUM
     Indication: GASTROOESOPHAGEAL REFLUX DISEASE
     Dosage: UNKNOWN
     Route: 048
     Dates: start: 20071002
  18. NEXIUM [Suspect]
     Active Substance: ESOMEPRAZOLE MAGNESIUM
     Indication: GASTROOESOPHAGEAL REFLUX DISEASE
     Dosage: GENERIC40.0MG UNKNOWN
     Route: 048
     Dates: start: 20160530
  19. ALTACE [Concomitant]
     Active Substance: RAMIPRIL
     Dosage: 10.0MG UNKNOWN
     Dates: start: 20060802
  20. RANITIDINE. [Concomitant]
     Active Substance: RANITIDINE
  21. ZANTAC [Concomitant]
     Active Substance: RANITIDINE HYDROCHLORIDE
  22. PRILOSEC [Suspect]
     Active Substance: OMEPRAZOLE MAGNESIUM
     Route: 048
     Dates: start: 2005, end: 2016
  23. SOTALOL. [Concomitant]
     Active Substance: SOTALOL
     Dosage: 80.0MG UNKNOWN
     Dates: start: 20051213
  24. FENOFIBRATE. [Concomitant]
     Active Substance: FENOFIBRATE
     Indication: BLOOD CHOLESTEROL
  25. LEVOTHYROXINE SODIUM. [Concomitant]
     Active Substance: LEVOTHYROXINE SODIUM
     Indication: HYPOTHYROIDISM
  26. ALLEGRA [Concomitant]
     Active Substance: FEXOFENADINE HYDROCHLORIDE
  27. ZOCAR [Concomitant]
     Route: 048
  28. GLIPIZIDE. [Concomitant]
     Active Substance: GLIPIZIDE
  29. WARFARIN [Concomitant]
     Active Substance: WARFARIN
  30. WARFARIN [Concomitant]
     Active Substance: WARFARIN
     Indication: ANTICOAGULANT THERAPY
  31. CILOSTAZOL. [Concomitant]
     Active Substance: CILOSTAZOL
     Indication: VASODILATATION
  32. BETAPACE [Concomitant]
     Active Substance: SOTALOL HYDROCHLORIDE
     Route: 048
  33. TIZANIDINE. [Concomitant]
     Active Substance: TIZANIDINE
     Route: 048
  34. HYDROCODEINE [Concomitant]
     Active Substance: DIHYDROCODEINE PHOSPHATE
     Indication: PAIN
  35. LISINOPRIL. [Concomitant]
     Active Substance: LISINOPRIL
  36. NEXIUM [Suspect]
     Active Substance: ESOMEPRAZOLE MAGNESIUM
     Indication: GASTROOESOPHAGEAL REFLUX DISEASE
     Dosage: 40.0MG UNKNOWN
     Route: 048
     Dates: start: 20060612
  37. FUROSEMIDE. [Concomitant]
     Active Substance: FUROSEMIDE
     Dosage: 40.0MG UNKNOWN
     Dates: start: 20060503
  38. PROMETHAZINE [Concomitant]
     Active Substance: PROMETHAZINE HYDROCHLORIDE
     Dosage: 25.0MG UNKNOWN
     Dates: start: 20060303
  39. LIPITOR [Concomitant]
     Active Substance: ATORVASTATIN CALCIUM
     Dosage: 40.0MG UNKNOWN
     Dates: start: 20061121
  40. TIZANIDINE HYDROCHLORIDE. [Concomitant]
     Active Substance: TIZANIDINE HYDROCHLORIDE
     Indication: MUSCLE SPASMS
  41. CALCIUM [Concomitant]
     Active Substance: CALCIUM
  42. VALIUM [Concomitant]
     Active Substance: DIAZEPAM
  43. NEXIUM [Suspect]
     Active Substance: ESOMEPRAZOLE MAGNESIUM
     Indication: GASTROOESOPHAGEAL REFLUX DISEASE
     Dosage: UNKNOWN
     Route: 048
     Dates: start: 20070402
  44. FERROUS SULFATE. [Concomitant]
     Active Substance: FERROUS SULFATE
     Dosage: 325.0MG UNKNOWN
     Dates: start: 20050315
  45. NEURONTIN [Concomitant]
     Active Substance: GABAPENTIN
     Route: 048
  46. ATENOLOL. [Concomitant]
     Active Substance: ATENOLOL
     Route: 048
     Dates: start: 20151207
  47. NEXIUM [Suspect]
     Active Substance: ESOMEPRAZOLE MAGNESIUM
     Indication: GASTROOESOPHAGEAL REFLUX DISEASE
     Route: 048
     Dates: start: 2006, end: 2016
  48. ALPRAZOLAM. [Concomitant]
     Active Substance: ALPRAZOLAM
     Dosage: 0.5MG UNKNOWN
     Dates: start: 20050721
  49. CETRIZINE HCL [Concomitant]
     Route: 048
     Dates: start: 20151207
  50. ACETAMINOPHEN. [Concomitant]
     Active Substance: ACETAMINOPHEN
  51. FLUTICASONE. [Concomitant]
     Active Substance: FLUTICASONE
  52. REGLAN [Concomitant]
     Active Substance: METOCLOPRAMIDE HYDROCHLORIDE

REACTIONS (5)
  - Renal failure [Fatal]
  - Chronic kidney disease [Unknown]
  - Acute myocardial infarction [Fatal]
  - Nephrogenic anaemia [Unknown]
  - Acute kidney injury [Unknown]

NARRATIVE: CASE EVENT DATE: 201012
